FAERS Safety Report 24190837 (Version 1)
Quarter: 2024Q3

REPORT INFORMATION
  Report Type: Spontaneous
  Country: US (occurrence: None)
  Receive Date: 20240808
  Receipt Date: 20240808
  Transmission Date: 20241016
  Serious: Yes (Hospitalization)
  Sender: Public
  Company Number: None

PATIENT
  Age: 60 Year
  Sex: Male
  Weight: 85.3 kg

DRUGS (1)
  1. TALQUETAMAB-TGVS [Suspect]
     Active Substance: TALQUETAMAB-TGVS
     Indication: Plasma cell myeloma
     Dosage: OTHER FREQUENCY : EVERY 2 WEEKS;?
     Route: 058
     Dates: start: 20240604, end: 20240807

REACTIONS (5)
  - Pyrexia [None]
  - Cytokine release syndrome [None]
  - Fatigue [None]
  - Mental status changes [None]
  - Eating disorder [None]

NARRATIVE: CASE EVENT DATE: 20240807
